FAERS Safety Report 23524932 (Version 18)
Quarter: 2025Q3

REPORT INFORMATION
  Report Type: Report from Study
  Country: US (occurrence: US)
  Receive Date: 20240215
  Receipt Date: 20250808
  Transmission Date: 20251020
  Serious: Yes (Hospitalization, Other)
  Sender: TAKEDA
  Company Number: US-TAKEDA-2023TUS122396

PATIENT
  Age: 63 Year
  Sex: Female
  Weight: 133 kg

DRUGS (55)
  1. HUMAN IMMUNOGLOBULIN G [Suspect]
     Active Substance: HUMAN IMMUNOGLOBULIN G
     Indication: Immunodeficiency common variable
     Dosage: 50 GRAM, Q3WEEKS
  2. HUMAN IMMUNOGLOBULIN G [Suspect]
     Active Substance: HUMAN IMMUNOGLOBULIN G
     Indication: Immunodeficiency
     Dosage: 50 GRAM, Q3WEEKS
     Dates: start: 20231019
  3. ACETAMINOPHEN [Concomitant]
     Active Substance: ACETAMINOPHEN
  4. EPINEPHRINE [Concomitant]
     Active Substance: EPINEPHRINE
  5. Nac [Concomitant]
  6. ALBUTEROL\IPRATROPIUM [Concomitant]
     Active Substance: ALBUTEROL\IPRATROPIUM
  7. COENZYME Q10 [Concomitant]
     Active Substance: DIETARY SUPPLEMENT\UBIDECARENONE
  8. VALACYCLOVIR [Concomitant]
     Active Substance: VALACYCLOVIR HYDROCHLORIDE
  9. NEXIUM [Concomitant]
     Active Substance: ESOMEPRAZOLE MAGNESIUM
  10. FLUOXETINE HYDROCHLORIDE [Concomitant]
     Active Substance: FLUOXETINE HYDROCHLORIDE
  11. POTASSIUM CHLORIDE [Concomitant]
     Active Substance: POTASSIUM CHLORIDE
  12. TRAZODONE HCL [Concomitant]
     Active Substance: TRAZODONE HYDROCHLORIDE
  13. SODIUM CHLORIDE [Concomitant]
     Active Substance: SODIUM CHLORIDE
  14. NYSTATIN [Concomitant]
     Active Substance: NYSTATIN
  15. BREZTRI [Concomitant]
     Active Substance: BUDESONIDE\FORMOTEROL\GLYCOPYRROLATE
  16. TYLENOL ARTHRITIS PAIN [Concomitant]
     Active Substance: ACETAMINOPHEN
  17. ALBUTEROL SULFATE [Concomitant]
     Active Substance: ALBUTEROL SULFATE
  18. ALPRAZOLAM [Concomitant]
     Active Substance: ALPRAZOLAM
  19. AZELASTINE HYDROCHLORIDE [Concomitant]
     Active Substance: AZELASTINE HYDROCHLORIDE
  20. ESOMEPRAZOLE MAGNESIUM [Concomitant]
     Active Substance: ESOMEPRAZOLE MAGNESIUM
  21. DICLOFENAC SODIUM [Concomitant]
     Active Substance: DICLOFENAC SODIUM
  22. FLUTICASONE PROPIONATE [Concomitant]
     Active Substance: FLUTICASONE PROPIONATE
  23. IBUPROFEN [Concomitant]
     Active Substance: IBUPROFEN
  24. HYDROCORTISONE [Concomitant]
     Active Substance: HYDROCORTISONE
  25. MONTELUKAST SODIUM [Concomitant]
     Active Substance: MONTELUKAST SODIUM
  26. PREDNISONE [Concomitant]
     Active Substance: PREDNISONE
  27. RISPERIDONE [Concomitant]
     Active Substance: RISPERIDONE
  28. TIZANIDINE HYDROCHLORIDE [Concomitant]
     Active Substance: TIZANIDINE HYDROCHLORIDE
  29. OXYGEN [Concomitant]
     Active Substance: OXYGEN
  30. MUPIROCIN [Concomitant]
     Active Substance: MUPIROCIN
  31. ASPIRIN [Concomitant]
     Active Substance: ASPIRIN
  32. CALCIUM CARBONATE [Concomitant]
     Active Substance: CALCIUM CARBONATE
  33. CARBAMAZEPINE [Concomitant]
     Active Substance: CARBAMAZEPINE
  34. CARVEDILOL [Concomitant]
     Active Substance: CARVEDILOL
  35. CETIRIZINE HCL [Concomitant]
     Active Substance: CETIRIZINE HYDROCHLORIDE
  36. FUROSEMIDE [Concomitant]
     Active Substance: FUROSEMIDE
  37. GABAPENTIN [Concomitant]
     Active Substance: GABAPENTIN
  38. BENZONATATE [Concomitant]
     Active Substance: BENZONATATE
  39. MUCINEX [Concomitant]
     Active Substance: GUAIFENESIN
  40. FISH OIL [Concomitant]
     Active Substance: FISH OIL
  41. TRIAMCINOLONE ACETONIDE [Concomitant]
     Active Substance: TRIAMCINOLONE ACETONIDE
  42. CETIRIZINE [Concomitant]
     Active Substance: CETIRIZINE HYDROCHLORIDE
  43. FLUOXETINE [Concomitant]
     Active Substance: FLUOXETINE HYDROCHLORIDE
  44. AZELASTINE [Concomitant]
     Active Substance: AZELASTINE
  45. TIZANIDINE [Concomitant]
     Active Substance: TIZANIDINE
  46. TRAZODONE [Concomitant]
     Active Substance: TRAZODONE HYDROCHLORIDE
  47. LIDOCAINE [Concomitant]
     Active Substance: LIDOCAINE
  48. HEPARIN [Concomitant]
     Active Substance: HEPARIN SODIUM
  49. DIPHENHYDRAMINE HYDROCHLORIDE [Concomitant]
     Active Substance: DIPHENHYDRAMINE HYDROCHLORIDE
  50. CYCLOBENZAPRINE HYDROCHLORIDE [Concomitant]
     Active Substance: CYCLOBENZAPRINE HYDROCHLORIDE
  51. SODIUM CHLORIDE [Concomitant]
     Active Substance: SODIUM CHLORIDE
  52. LIDOCAINE\PRILOCAINE [Concomitant]
     Active Substance: LIDOCAINE\PRILOCAINE
  53. DIFLUCAN [Concomitant]
     Active Substance: FLUCONAZOLE
  54. CALCIUM [Concomitant]
     Active Substance: CALCIUM
  55. LORATADINE [Concomitant]
     Active Substance: LORATADINE

REACTIONS (36)
  - Pneumonia [Unknown]
  - Pneumonia bacterial [Unknown]
  - Escherichia infection [Unknown]
  - Blood potassium decreased [Unknown]
  - Pseudomonas infection [Unknown]
  - Choking [Unknown]
  - Pneumonia aspiration [Unknown]
  - Pulmonary oedema [Unknown]
  - Chronic obstructive pulmonary disease [Recovered/Resolved]
  - Fungal skin infection [Unknown]
  - Illness [Unknown]
  - White blood cell count increased [Unknown]
  - COVID-19 [Unknown]
  - Brain fog [Unknown]
  - Fibromyalgia [Unknown]
  - Pharyngitis streptococcal [Recovered/Resolved]
  - Respiratory tract infection [Unknown]
  - Dermatitis contact [Unknown]
  - Device issue [Unknown]
  - Fungal infection [Unknown]
  - Dysphagia [Unknown]
  - Skin infection [Unknown]
  - Infection [Unknown]
  - Urinary tract infection [Unknown]
  - Cellulitis [Unknown]
  - Infusion site infection [Unknown]
  - Insurance issue [Unknown]
  - Upper respiratory tract infection [Unknown]
  - Influenza [Unknown]
  - Asthma [Unknown]
  - Infusion site erythema [Unknown]
  - Infusion site pruritus [Unknown]
  - Malaise [Unknown]
  - Cough [Unknown]
  - Fatigue [Unknown]
  - Pyrexia [Unknown]

NARRATIVE: CASE EVENT DATE: 20240925
